FAERS Safety Report 17215107 (Version 1)
Quarter: 2019Q4

REPORT INFORMATION
  Report Type: Spontaneous
  Country: FR (occurrence: FR)
  Receive Date: 20191230
  Receipt Date: 20191230
  Transmission Date: 20200122
  Serious: Yes (Hospitalization)
  Sender: FDA-Public Use
  Company Number: FR-MYLANLABS-2019M1128520

PATIENT
  Age: 48 Year
  Sex: Male

DRUGS (1)
  1. TRAMADOL/PARACETAMOL MYLAN GENERIQUES [Suspect]
     Active Substance: ACETAMINOPHEN\TRAMADOL
     Indication: TENDONITIS
     Dosage: MATIN ET SOIR
     Route: 048
     Dates: start: 2019, end: 20190902

REACTIONS (1)
  - Epilepsy [Recovered/Resolved]

NARRATIVE: CASE EVENT DATE: 20190902
